FAERS Safety Report 13068505 (Version 1)
Quarter: 2016Q4

REPORT INFORMATION
  Report Type: Report from Study
  Country: US (occurrence: US)
  Receive Date: 20161228
  Receipt Date: 20161228
  Transmission Date: 20170207
  Serious: No
  Sender: FDA-Public Use
  Company Number: US-AMGEN-USASL2016178130

PATIENT
  Age: 71 Year
  Sex: Female

DRUGS (3)
  1. ENBREL [Suspect]
     Active Substance: ETANERCEPT
     Indication: PSORIATIC ARTHROPATHY
     Dosage: 50 MG, QWK
     Route: 065
  2. AMITIZA [Concomitant]
     Active Substance: LUBIPROSTONE
     Indication: CONSTIPATION
     Dosage: UNK
  3. CLARITIN [Concomitant]
     Active Substance: LORATADINE
     Indication: SINUS HEADACHE
     Dosage: UNK

REACTIONS (14)
  - Pain [Unknown]
  - Dyspepsia [Unknown]
  - Drug effect incomplete [Unknown]
  - Pain in extremity [Unknown]
  - Psoriasis [Unknown]
  - Injection site pain [Unknown]
  - Weight increased [Unknown]
  - Muscle spasms [Unknown]
  - Gait disturbance [Unknown]
  - Nail disorder [Unknown]
  - Cyst [Unknown]
  - Peripheral swelling [Unknown]
  - Injection site pruritus [Unknown]
  - Injection site swelling [Unknown]

NARRATIVE: CASE EVENT DATE: 2016
